FAERS Safety Report 21784518 (Version 3)
Quarter: 2023Q1

REPORT INFORMATION
  Report Type: Spontaneous
  Country: RU (occurrence: None)
  Receive Date: 20221227
  Receipt Date: 20230207
  Transmission Date: 20230418
  Serious: Yes (Death)
  Sender: FDA-Public Use
  Company Number: RU-ROCHE-3249033

PATIENT
  Age: 13 Year
  Sex: Female

DRUGS (1)
  1. EVRYSDI [Suspect]
     Active Substance: RISDIPLAM
     Indication: Spinal muscular atrophy
     Dosage: 4.25 MG/DAY. THERAPY WITH RISDIPLAM WAS INITIATED ON 18/NOV/2021 (AT THE AGE OF 11 YEARS?11 MONTHS)
     Route: 048
     Dates: start: 20211118

REACTIONS (1)
  - Death [Fatal]

NARRATIVE: CASE EVENT DATE: 20221030
